FAERS Safety Report 9036629 (Version 1)
Quarter: 2013Q1

REPORT INFORMATION
  Report Type: Spontaneous
  Country: US (occurrence: None)
  Receive Date: 20130114
  Receipt Date: 20130114
  Transmission Date: 20140127
  Serious: Yes (Other)
  Sender: FDA-Public Use
  Company Number: 2013-00010

PATIENT
  Age: 31 Year
  Sex: Female
  Weight: 68.04 kg

DRUGS (2)
  1. ZICAM EXTREME CONGESTION RELIEF [Suspect]
     Dosage: TWO SQUIRTS
     Route: 045
     Dates: start: 20121228
  2. VITAMINS [Concomitant]

REACTIONS (4)
  - Cough [None]
  - Drug dependence [None]
  - Dyspnoea [None]
  - Pregnancy [None]
